FAERS Safety Report 5140545-2 (Version None)
Quarter: 2006Q4

REPORT INFORMATION
  Report Type: 
  Country: None (occurrence: None)
  Receive Date: 20061031
  Receipt Date: 20061019
  Transmission Date: 20070319
  Serious: Yes (Hospitalization)
  Sender: FDA-Public Use
  Company Number: US-JNJFOC-20051206212

PATIENT
  Age: 70 Year
  Sex: Male
  Weight: 87 kg

DRUGS (25)
  1. DOXIL [Suspect]
     Dosage: CYCLE 3
     Route: 042
  2. DOXIL [Suspect]
     Dosage: CYCLE 2:  OVER 1 HOUR DAY 1
     Route: 042
  3. DOXIL [Suspect]
     Indication: B-CELL LYMPHOMA
     Route: 042
  4. RITUXAN [Suspect]
     Route: 042
  5. RITUXAN [Suspect]
     Dosage: IVPB DAY 1, ADMINISTERED FIRST
     Route: 042
  6. RITUXAN [Suspect]
     Indication: B-CELL LYMPHOMA
     Dosage: DAY 1
     Route: 042
  7. VINCRISTINE [Suspect]
     Indication: B-CELL LYMPHOMA
     Dosage: DAY 1
     Route: 042
  8. CYTOXAN [Suspect]
     Dosage: CYCLE 2:  IVPB DAY 1
     Route: 042
  9. CYTOXAN [Suspect]
     Dosage: CYCLE 2:  IVPB DAY 1
     Route: 042
  10. CYTOXAN [Suspect]
     Indication: B-CELL LYMPHOMA
     Route: 042
  11. PREDNISONE TAB [Suspect]
     Route: 048
  12. PREDNISONE TAB [Suspect]
     Dosage: DAYS 1 TO 5
     Route: 048
  13. PREDNISONE TAB [Suspect]
     Indication: B-CELL LYMPHOMA
     Dosage: DAYS 1-5
     Route: 048
  14. NEULASTA [Suspect]
     Indication: CHEMOTHERAPY CYTOKINE PROPHYLAXIS
     Route: 058
  15. LANTUS [Concomitant]
     Route: 058
  16. NOVOLIN R [Concomitant]
     Route: 058
  17. BUMEX [Concomitant]
     Route: 065
  18. OXYCODONE HCL [Concomitant]
     Dosage: 1 TO 3 TABLETS EVERY 4 HOURS
     Route: 048
  19. OXYCODONE HCL [Concomitant]
     Indication: PAIN
     Dosage: EXTENDED RELEASE
     Route: 048
  20. PROTONIX [Concomitant]
     Route: 065
  21. ALTACE [Concomitant]
     Route: 065
  22. K-DUR 10 [Concomitant]
     Route: 065
  23. LIPITOR [Concomitant]
     Route: 065
  24. BACLOFEN [Concomitant]
     Route: 065
  25. TOPROL-XL [Concomitant]
     Route: 065

REACTIONS (11)
  - ACUTE RESPIRATORY DISTRESS SYNDROME [None]
  - ANAEMIA [None]
  - ATRIAL FIBRILLATION [None]
  - CONFUSIONAL STATE [None]
  - COUGH [None]
  - HYPOXIA [None]
  - NEUTROPENIA [None]
  - OSTEOMYELITIS [None]
  - PNEUMONIA [None]
  - THROMBOCYTOPENIA [None]
  - WOUND INFECTION [None]
